FAERS Safety Report 15791633 (Version 1)
Quarter: 2019Q1

REPORT INFORMATION
  Report Type: Spontaneous
  Country: US (occurrence: US)
  Receive Date: 20190105
  Receipt Date: 20190105
  Transmission Date: 20190417
  Serious: No
  Sender: FDA-Public Use
  Company Number: US-JNJFOC-20181219349

PATIENT
  Sex: Female

DRUGS (2)
  1. WOMENS ROGAINE [Suspect]
     Active Substance: MINOXIDIL
     Indication: PRODUCT USED FOR UNKNOWN INDICATION
     Route: 061
     Dates: start: 1998
  2. WOMENS ROGAINE [Suspect]
     Active Substance: MINOXIDIL
     Route: 061

REACTIONS (2)
  - Pruritus [Recovered/Resolved]
  - Inappropriate schedule of product administration [Unknown]

NARRATIVE: CASE EVENT DATE: 1998
